FAERS Safety Report 23342311 (Version 1)
Quarter: 2023Q4

REPORT INFORMATION
  Report Type: Spontaneous
  Country: FR (occurrence: FR)
  Receive Date: 20231227
  Receipt Date: 20231227
  Transmission Date: 20240110
  Serious: Yes (Life-Threatening)
  Sender: FDA-Public Use
  Company Number: None

PATIENT
  Age: 35 Year
  Sex: Female
  Weight: 107 kg

DRUGS (2)
  1. TRAMADOL [Suspect]
     Active Substance: TRAMADOL\TRAMADOL HYDROCHLORIDE
     Indication: Product used for unknown indication
     Dosage: 15000 MILLIGRAM (1 TOTAL)
     Route: 048
     Dates: start: 20231124
  2. LORMETAZEPAM [Suspect]
     Active Substance: LORMETAZEPAM
     Indication: Product used for unknown indication
     Dosage: 28 MILLIGRAM (1 TOTAL)
     Route: 048
     Dates: start: 20231124

REACTIONS (5)
  - Poisoning deliberate [Recovered/Resolved]
  - Hypercapnia [Recovered/Resolved]
  - Respiratory distress [Recovered/Resolved]
  - Confusional state [Not Recovered/Not Resolved]
  - Somnolence [Not Recovered/Not Resolved]

NARRATIVE: CASE EVENT DATE: 20231124
